APPROVED DRUG PRODUCT: CARBIDOPA AND LEVODOPA
Active Ingredient: CARBIDOPA; LEVODOPA
Strength: 25MG;100MG
Dosage Form/Route: TABLET, EXTENDED RELEASE;ORAL
Application: A202323 | Product #001 | TE Code: AB
Applicant: ACCORD HEALTHCARE INC
Approved: Feb 8, 2013 | RLD: No | RS: No | Type: RX